FAERS Safety Report 19928074 (Version 1)
Quarter: 2021Q4

REPORT INFORMATION
  Report Type: Spontaneous
  Country: US (occurrence: US)
  Receive Date: 20211006
  Receipt Date: 20211006
  Transmission Date: 20220303
  Serious: Yes (Other)
  Sender: FDA-Public Use
  Company Number: None

PATIENT
  Age: 55 Year
  Sex: Female
  Weight: 83.25 kg

DRUGS (1)
  1. ARTNATURALS SCENT FREE HAND SANITIZER [Suspect]
     Active Substance: ALCOHOL
     Indication: COVID-19 prophylaxis
     Route: 061
     Dates: start: 20200301, end: 20211006

REACTIONS (1)
  - Squamous cell carcinoma [None]

NARRATIVE: CASE EVENT DATE: 20210503
